FAERS Safety Report 9501850 (Version 1)
Quarter: 2013Q1

REPORT INFORMATION
  Report Type: Spontaneous
  Country: US (occurrence: None)
  Receive Date: 20130107
  Receipt Date: 20130107
  Transmission Date: 20140127
  Serious: No
  Sender: FDA-Public Use
  Company Number: PHEH2012US017917

PATIENT
  Age: 50 Year
  Sex: Male

DRUGS (1)
  1. GILENYA (FTY) CAPSULE, 0.5MG [Suspect]
     Indication: MULTIPLE SCLEROSIS
     Route: 048
     Dates: start: 20111027, end: 20120911

REACTIONS (5)
  - Slow speech [None]
  - Fatigue [None]
  - Pain in extremity [None]
  - Gait disturbance [None]
  - Asthenia [None]
